FAERS Safety Report 9658817 (Version 2)
Quarter: 2013Q4

REPORT INFORMATION
  Report Type: Spontaneous
  Country: US (occurrence: US)
  Receive Date: 20131030
  Receipt Date: 20131030
  Transmission Date: 20140711
  Serious: No
  Sender: FDA-Public Use
  Company Number: US-PURDUE-USA-2010-0056337

PATIENT
  Sex: Male

DRUGS (2)
  1. OXYCONTIN (NDA 22-272) [Suspect]
     Indication: NECK PAIN
     Dosage: 80 MG, QID
     Route: 048
     Dates: start: 20100908, end: 20101007
  2. OXYCONTIN TABLETS [Concomitant]
     Indication: PRODUCT USED FOR UNKNOWN INDICATION
     Dosage: 80 MG, QID
     Route: 048

REACTIONS (8)
  - Pain [Recovered/Resolved]
  - Product taste abnormal [Recovered/Resolved]
  - Product gel formation [Recovered/Resolved]
  - Product size issue [Recovered/Resolved]
  - Drug effect decreased [Recovered/Resolved]
  - Feeling jittery [Recovered/Resolved]
  - Tremor [Unknown]
  - Drug ineffective [Recovered/Resolved]
